FAERS Safety Report 4824112-3 (Version None)
Quarter: 2005Q4

REPORT INFORMATION
  Report Type: 
  Country: None (occurrence: None)
  Receive Date: 20051109
  Receipt Date: 20051019
  Transmission Date: 20060501
  Serious: Yes (Other)
  Sender: FDA-Public Use
  Company Number: JP-AVENTIS-200513075JP

PATIENT
  Age: 67 Year
  Sex: Male

DRUGS (3)
  1. INSULIN [Suspect]
     Indication: DIABETES MELLITUS
  2. ANTIBIOTICS [Concomitant]
  3. IMMUNOGLOBULIN NOS [Concomitant]

REACTIONS (1)
  - HYPOKALAEMIA [None]
